FAERS Safety Report 7685783-X (Version None)
Quarter: 2011Q3

REPORT INFORMATION
  Report Type: 
  Country: None (occurrence: None)
  Receive Date: 20110815
  Receipt Date: 20110815
  Transmission Date: 20111222
  Serious: Yes (Life-Threatening, Hospitalization, Other)
  Sender: FDA-Public Use
  Company Number: None

PATIENT

DRUGS (1)
  1. DOXIL [Suspect]

REACTIONS (5)
  - RESPIRATORY DISORDER [None]
  - COUGH [None]
  - PYREXIA [None]
  - LUNG DISORDER [None]
  - DRUG INEFFECTIVE [None]
